FAERS Safety Report 6222627-7 (Version None)
Quarter: 2009Q2

REPORT INFORMATION
  Report Type: 
  Country: None (occurrence: None)
  Receive Date: 20090611
  Receipt Date: 20090603
  Transmission Date: 20091009
  Serious: Yes (Hospitalization)
  Sender: FDA-Public Use
  Company Number: AU-NOVOPROD-288041

PATIENT
  Age: 61 Year
  Sex: Male
  Weight: 88.7 kg

DRUGS (13)
  1. NOVOSEVEN [Suspect]
     Indication: GRAFT HAEMORRHAGE
     Dosage: 4.8 MG, UNK
     Dates: start: 20080603, end: 20080603
  2. ASPIRIN [Concomitant]
     Dates: start: 20080528
  3. TRANEXAMIC ACID [Concomitant]
  4. PROTAMINE SULFATE [Concomitant]
  5. DDAVP [Concomitant]
  6. BLOOD CELLS, PACKED HUMAN [Concomitant]
     Dosage: BEFORE NOVOSEVEN
  7. BLOOD CELLS, PACKED HUMAN [Concomitant]
     Dosage: AFTER NOVOSEVEN
  8. FRESH FROZEN PLASMA [Concomitant]
     Dosage: BEFORE NOVOSEVEN
  9. FRESH FROZEN PLASMA [Concomitant]
     Dosage: AFTER NOVOSEVEN
  10. PLATELETS [Concomitant]
     Dosage: BEFORE NOVOSEVEN
  11. PLATELETS [Concomitant]
     Dosage: AFTER NOVOSEVEN
  12. ALBUMEX 20 [Concomitant]
     Dosage: AFTER NOVOSEVEN
  13. DDAVP [Concomitant]

REACTIONS (2)
  - ACUTE RESPIRATORY DISTRESS SYNDROME [None]
  - MULTI-ORGAN FAILURE [None]
